FAERS Safety Report 10167076 (Version 1)
Quarter: 2014Q2

REPORT INFORMATION
  Report Type: Spontaneous
  Country: CA (occurrence: CA)
  Receive Date: 20140512
  Receipt Date: 20140512
  Transmission Date: 20141212
  Serious: Yes (Other)
  Sender: FDA-Public Use
  Company Number: CA-PFIZER INC-2014126700

PATIENT
  Age: 55 Year
  Sex: Male

DRUGS (5)
  1. MORPHINE SULFATE [Suspect]
     Dosage: UNK
  2. DILAUDID [Suspect]
     Dosage: UNK
  3. CODEINE [Suspect]
     Dosage: UNK
  4. FIORINAL-C [Suspect]
     Dosage: 6 DF, DAILY
  5. FIORINAL-C 1/4 /00141301/ [Suspect]

REACTIONS (16)
  - Cerebrovascular accident [Unknown]
  - General physical health deterioration [Unknown]
  - Abasia [Unknown]
  - Abnormal behaviour [Unknown]
  - Dysarthria [Unknown]
  - Gait disturbance [Unknown]
  - Hypersomnia [Unknown]
  - Musculoskeletal stiffness [Unknown]
  - Myalgia [Unknown]
  - Performance status decreased [Unknown]
  - Staring [Unknown]
  - Balance disorder [Unknown]
  - Mental impairment [Unknown]
  - Tremor [Unknown]
  - Headache [Unknown]
  - Nausea [Unknown]
